FAERS Safety Report 17068766 (Version 1)
Quarter: 2019Q4

REPORT INFORMATION
  Report Type: Spontaneous
  Country: IT (occurrence: IT)
  Receive Date: 20191123
  Receipt Date: 20191123
  Transmission Date: 20200122
  Serious: Yes (Death, Other)
  Sender: FDA-Public Use
  Company Number: IT-MYLANLABS-2019M1112984

PATIENT
  Age: 69 Year
  Sex: Female

DRUGS (2)
  1. METRONIDAZOLE. [Suspect]
     Active Substance: METRONIDAZOLE
     Indication: SEPTIC SHOCK
     Dosage: UNK
  2. CEFTOLOZANE SULFATE W/TAZOBACTAM SODIUM [Suspect]
     Active Substance: CEFTOLOZANE SULFATE\TAZOBACTAM SODIUM
     Indication: SEPTIC SHOCK

REACTIONS (4)
  - Death [Fatal]
  - Product use in unapproved indication [Unknown]
  - Staphylococcal infection [Unknown]
  - Off label use [Unknown]
